FAERS Safety Report 9004789 (Version 2)
Quarter: 2013Q1

REPORT INFORMATION
  Report Type: Spontaneous
  Country: US (occurrence: US)
  Receive Date: 20130109
  Receipt Date: 20130123
  Transmission Date: 20140127
  Serious: No
  Sender: FDA-Public Use
  Company Number: US-PFIZER INC-2013007778

PATIENT
  Age: 79 Year
  Sex: Female
  Weight: 68.03 kg

DRUGS (12)
  1. GABAPENTIN [Suspect]
     Indication: PAIN
     Dosage: UNK
  2. LYRICA [Suspect]
     Indication: PAIN
     Dosage: 50 MG, 4X/DAY
     Dates: start: 2010
  3. LANTUS [Concomitant]
     Indication: DIABETES MELLITUS
     Dosage: UNK
  4. PREDNISONE [Concomitant]
     Dosage: UNK
  5. CLONIDINE [Concomitant]
     Dosage: 0.2 MG, UNK
  6. METHOTREXATE [Concomitant]
     Dosage: 2.5 MG, UNK
  7. BENICAR [Concomitant]
     Dosage: 40 MG, UNK
  8. SYNTHROID [Concomitant]
     Dosage: 75 MG, UNK
  9. ALLOPURINOL [Concomitant]
     Dosage: UNK
  10. PREDNISOLONE [Concomitant]
     Dosage: 2.5 MG, UNK
  11. MORPHINE [Concomitant]
     Dosage: UNK, 1X/DAY
  12. ZETIA [Concomitant]
     Dosage: UNK

REACTIONS (1)
  - Paraesthesia [Unknown]
